FAERS Safety Report 19941809 (Version 1)
Quarter: 2021Q4

REPORT INFORMATION
  Report Type: Spontaneous
  Country: US (occurrence: US)
  Receive Date: 20211012
  Receipt Date: 20211012
  Transmission Date: 20220304
  Serious: No
  Sender: FDA-Public Use
  Company Number: US-AMGEN-USASP2021155519

PATIENT
  Sex: Female

DRUGS (14)
  1. ENBREL [Suspect]
     Active Substance: ETANERCEPT
     Indication: Drug therapy
     Dosage: 50 MILLIGRAM, QWK
     Route: 058
     Dates: start: 20191107
  2. ENBREL [Suspect]
     Active Substance: ETANERCEPT
     Indication: Product used for unknown indication
  3. CARVEDILOL [Concomitant]
     Active Substance: CARVEDILOL
  4. CROMOLYN SODIUM [Concomitant]
     Active Substance: CROMOLYN SODIUM
  5. FLUTICASONE PROPIONATE [Concomitant]
     Active Substance: FLUTICASONE PROPIONATE
  6. FOLIC ACID [Concomitant]
     Active Substance: FOLIC ACID
  7. GABAPENTIN [Concomitant]
     Active Substance: GABAPENTIN
  8. ISOSORBIDE MONONITRATE [Concomitant]
     Active Substance: ISOSORBIDE MONONITRATE
  9. OMEPRAZOLE [Concomitant]
     Active Substance: OMEPRAZOLE
  10. MONTELUKAST SODIUM [Concomitant]
     Active Substance: MONTELUKAST SODIUM
  11. PREDNISONE [Concomitant]
     Active Substance: PREDNISONE
  12. QUETIAPINE FUMARATE [Concomitant]
     Active Substance: QUETIAPINE FUMARATE
  13. VENTOLIN HFA [Concomitant]
     Active Substance: ALBUTEROL SULFATE
  14. OXYCODONE AND ACETAMINOPHEN [Concomitant]
     Active Substance: ACETAMINOPHEN\OXYCODONE HYDROCHLORIDE

REACTIONS (1)
  - Swelling [Not Recovered/Not Resolved]
